FAERS Safety Report 6997685-2 (Version None)
Quarter: 2010Q3

REPORT INFORMATION
  Report Type: 
  Country: None (occurrence: None)
  Receive Date: 20100918
  Receipt Date: 20091123
  Transmission Date: 20110219
  Serious: No
  Sender: FDA-Public Use
  Company Number: US-WYE-H12313709

PATIENT
  Age: 38 Year
  Sex: Female

DRUGS (8)
  1. PRISTIQ [Suspect]
     Indication: DEPRESSION
     Route: 048
     Dates: start: 20091101, end: 20091101
  2. PRISTIQ [Suspect]
     Route: 048
     Dates: start: 20091101, end: 20091101
  3. PRISTIQ [Suspect]
     Route: 048
     Dates: start: 20091101, end: 20091101
  4. PRISTIQ [Suspect]
     Route: 048
     Dates: start: 20091101
  5. PROZAC [Concomitant]
  6. PAXIL [Concomitant]
  7. CYMBALTA [Concomitant]
  8. SEROQUEL [Concomitant]

REACTIONS (5)
  - DIARRHOEA [None]
  - DRUG INEFFECTIVE [None]
  - DRUG WITHDRAWAL SYNDROME [None]
  - NAUSEA [None]
  - VERTIGO [None]
